FAERS Safety Report 7410948-1 (Version None)
Quarter: 2011Q2

REPORT INFORMATION
  Report Type: 
  Country: None (occurrence: None)
  Receive Date: 20110405
  Receipt Date: 20110329
  Transmission Date: 20111010
  Serious: Yes (Life-Threatening, Hospitalization)
  Sender: FDA-Public Use
  Company Number: BR-001627

PATIENT
  Sex: Female
  Weight: 22 kg

DRUGS (1)
  1. NAGLAZYME [Suspect]
     Indication: MUCOPOLYSACCHARIDOSIS IV
     Dosage: (1 MG/KG 1X/WEEK INTRAVENOUS DRIP)
     Route: 041
     Dates: start: 20100226

REACTIONS (2)
  - CARDIO-RESPIRATORY ARREST [None]
  - UMBILICAL HERNIA [None]
